FAERS Safety Report 7541881-2 (Version None)
Quarter: 2011Q2

REPORT INFORMATION
  Report Type: 
  Country: None (occurrence: None)
  Receive Date: 20110524
  Receipt Date: 20110314
  Transmission Date: 20111010
  Serious: No
  Sender: FDA-Public Use
  Company Number: 029302

PATIENT
  Sex: Male
  Weight: 95.7 kg

DRUGS (4)
  1. ASACOL [Concomitant]
  2. CIMZIA [Suspect]
     Indication: CROHN'S DISEASE
     Dosage: 200 MG 1X/2 WEEKS SUBCUTANEOUS
     Route: 058
     Dates: start: 20100401
  3. NOVOLOG [Concomitant]
  4. LEVEMIR [Concomitant]

REACTIONS (1)
  - WOUND [None]
